FAERS Safety Report 20761779 (Version 3)
Quarter: 2024Q1

REPORT INFORMATION
  Report Type: Spontaneous
  Country: JP (occurrence: JP)
  Receive Date: 20220428
  Receipt Date: 20240125
  Transmission Date: 20240410
  Serious: Yes (Other)
  Sender: FDA-Public Use
  Company Number: JP-TAKEDA-2022TJP041506

PATIENT
  Age: 55 Year
  Sex: Female

DRUGS (3)
  1. ALUNBRIG [Suspect]
     Active Substance: BRIGATINIB
     Indication: Non-small cell lung cancer
     Dosage: 90 MILLIGRAM
     Route: 048
     Dates: start: 20210426
  2. ALUNBRIG [Suspect]
     Active Substance: BRIGATINIB
     Dosage: 180 MILLIGRAM
     Route: 048
  3. ALUNBRIG [Suspect]
     Active Substance: BRIGATINIB
     Dosage: 120 MILLIGRAM
     Route: 048

REACTIONS (2)
  - Altered state of consciousness [Recovered/Resolved]
  - Drug-induced liver injury [Recovered/Resolved]
